FAERS Safety Report 12716640 (Version 2)
Quarter: 2016Q4

REPORT INFORMATION
  Report Type: Spontaneous
  Country: US (occurrence: US)
  Receive Date: 20160906
  Receipt Date: 20161007
  Transmission Date: 20170207
  Serious: Yes (Hospitalization, Other)
  Sender: FDA-Public Use
  Company Number: US-PFIZER INC-2016411031

PATIENT
  Age: 64 Year
  Sex: Female
  Weight: 68.4 kg

DRUGS (5)
  1. DILANTIN [Suspect]
     Active Substance: PHENYTOIN
     Dosage: UNK, 2X/DAY (100)
     Dates: start: 200007
  2. DILANTIN [Suspect]
     Active Substance: PHENYTOIN
     Indication: SEIZURE
     Dosage: ONE CAPSULE 100 MG AND ANOTHER OF 130 MG CAPSULE (TWICE A DAY)
  3. DILANTIN [Suspect]
     Active Substance: PHENYTOIN
     Dosage: UNK, 2X/DAY (30)
  4. SUCROSE [Concomitant]
     Active Substance: SUCROSE
     Dosage: UNK
  5. SUCRALFATE. [Concomitant]
     Active Substance: SUCRALFATE
     Indication: GASTRIC PERFORATION
     Dosage: UNK
     Dates: start: 2014

REACTIONS (6)
  - Lymphoma [Not Recovered/Not Resolved]
  - Abdominal pain upper [Unknown]
  - Extranodal marginal zone B-cell lymphoma (MALT type) [Not Recovered/Not Resolved]
  - Gastric cancer [Not Recovered/Not Resolved]
  - Plasma cell myeloma [Not Recovered/Not Resolved]
  - Gastric ulcer [Not Recovered/Not Resolved]

NARRATIVE: CASE EVENT DATE: 2013
